FAERS Safety Report 4289905-2 (Version None)
Quarter: 2004Q1

REPORT INFORMATION
  Report Type: 
  Country: None (occurrence: None)
  Receive Date: 20040205
  Receipt Date: 20040123
  Transmission Date: 20041129
  Serious: Yes (Death)
  Sender: FDA-Public Use
  Company Number: 03H-028-0233802-00

PATIENT
  Age: 52 Year
  Sex: Male

DRUGS (12)
  1. DEXTROSE 5% [Suspect]
     Dosage: 20 ML/HR, CONT. INFUSION, INTRAVENOUS
     Route: 042
     Dates: start: 20030901, end: 20030901
  2. DOBUTAMINE HCL [Concomitant]
  3. DOPAMINE [Concomitant]
  4. HEPARIN [Concomitant]
  5. CEFTRIAXONE SODIUM [Concomitant]
  6. CEFOXITIN SODIUM [Concomitant]
  7. FENOTEROL HYDROBROMIDE [Concomitant]
  8. FUROSEMIDE [Concomitant]
  9. FENTANYL [Concomitant]
  10. MIDAZOLAM HYDROCHLORIDE [Concomitant]
  11. PHYTONADIONE [Concomitant]
  12. ORCIPRENALINE SULFATE [Concomitant]

REACTIONS (1)
  - DEVICE FAILURE [None]
